FAERS Safety Report 11770659 (Version 1)
Quarter: 2015Q4

REPORT INFORMATION
  Report Type: Report from Study
  Country: BR (occurrence: BR)
  Receive Date: 20151123
  Receipt Date: 20151123
  Transmission Date: 20160304
  Serious: Yes (Disabling, Other)
  Sender: FDA-Public Use
  Company Number: BR-ABBVIE-15K-020-1502952-00

PATIENT
  Sex: Female

DRUGS (1)
  1. HUMIRA [Suspect]
     Active Substance: ADALIMUMAB
     Indication: RHEUMATOID ARTHRITIS
     Route: 058

REACTIONS (9)
  - Bedridden [Unknown]
  - Pain [Unknown]
  - Blood cholesterol abnormal [Unknown]
  - Peripheral swelling [Not Recovered/Not Resolved]
  - Joint range of motion decreased [Unknown]
  - Musculoskeletal discomfort [Unknown]
  - Alopecia [Not Recovered/Not Resolved]
  - Cerebral disorder [Unknown]
  - Abasia [Not Recovered/Not Resolved]
